FAERS Safety Report 10388698 (Version 1)
Quarter: 2014Q1

REPORT INFORMATION
  Report Type: Spontaneous
  Country: US (occurrence: None)
  Receive Date: 20140306
  Receipt Date: 20140306
  Transmission Date: 20141002
  Serious: Yes (Hospitalization, Other)
  Sender: FDA-Public Use
  Company Number: 163-21880-13110439

PATIENT
  Age: 71 Year
  Sex: Female
  Weight: 68.04 kg

DRUGS (6)
  1. REVLIMID (LENALIDOMIDE) (25 MILLIGRAM, CAPSULES) [Suspect]
     Indication: PLASMA CELL MYELOMA
     Route: 048
     Dates: start: 20131021, end: 20131029
  2. NORCO (VICODIN) [Concomitant]
  3. FENTANYL [Concomitant]
  4. ZOMETA (ZOLEDRONIC ACID) [Concomitant]
  5. NEURONTIN (GABAPENTIN) [Concomitant]
  6. NORVASC (AMLODIPINE BESILATE) [Concomitant]

REACTIONS (4)
  - Nausea [None]
  - Decreased appetite [None]
  - Hyperhidrosis [None]
  - Asthenia [None]
